FAERS Safety Report 17640610 (Version 1)
Quarter: 2020Q2

REPORT INFORMATION
  Report Type: Spontaneous
  Country: US (occurrence: US)
  Receive Date: 20200408
  Receipt Date: 20200408
  Transmission Date: 20200713
  Serious: Yes (Life-Threatening, Other)
  Sender: FDA-Public Use
  Company Number: US-AUROBINDO-AUR-APL-2019-068886

PATIENT
  Age: 11 Year
  Sex: Female

DRUGS (7)
  1. METHOTREXATE. [Suspect]
     Active Substance: METHOTREXATE
     Indication: SARCOIDOSIS
  2. METHOTREXATE. [Suspect]
     Active Substance: METHOTREXATE
     Indication: NEUROSARCOIDOSIS
     Dosage: 20 MILLIGRAM WEEKLY
     Route: 058
  3. CYCLOPHOSPHAMIDE. [Suspect]
     Active Substance: CYCLOPHOSPHAMIDE
     Indication: SARCOIDOSIS
     Dosage: 750 MG/M2
     Route: 042
  4. METHYLPREDNISOLONE. [Suspect]
     Active Substance: METHYLPREDNISOLONE
     Indication: NEUROSARCOIDOSIS
     Dosage: 1000 MILLIGRAM, DAILY FOR 3 DAYS
     Route: 042
  5. PREDNISONE. [Suspect]
     Active Substance: PREDNISONE
     Indication: NEUROSARCOIDOSIS
     Dosage: 60 MILLIGRAM, DAILY
     Route: 065
  6. PREDNISONE. [Suspect]
     Active Substance: PREDNISONE
     Indication: SARCOIDOSIS
  7. METHYLPREDNISOLONE. [Suspect]
     Active Substance: METHYLPREDNISOLONE
     Indication: SARCOIDOSIS
     Dosage: 30 MILLIGRAM/KILOGRAM PER DAY FOR 5 DAYS
     Route: 042

REACTIONS (3)
  - Drug ineffective [Unknown]
  - Muscular weakness [Unknown]
  - Myelitis transverse [Unknown]
